FAERS Safety Report 10931720 (Version 1)
Quarter: 2015Q1

REPORT INFORMATION
  Report Type: Spontaneous
  Country: NL (occurrence: NL)
  Receive Date: 20150319
  Receipt Date: 20150319
  Transmission Date: 20150721
  Serious: Yes (Death, Other)
  Sender: FDA-Public Use
  Company Number: PHHY2015NL030264

PATIENT
  Age: 78 Year
  Sex: Female

DRUGS (4)
  1. ROSUVASTATIN [Suspect]
     Active Substance: ROSUVASTATIN
     Indication: LOW DENSITY LIPOPROTEIN
     Dosage: 5 MG, BIW
     Route: 065
  2. ATORVASTATIN [Suspect]
     Active Substance: ATORVASTATIN
     Indication: HYPERCHOLESTEROLAEMIA
     Dosage: 10 MG, QD FOR 09 MONTHS
     Route: 065
  3. CANDESARTAN [Concomitant]
     Active Substance: CANDESARTAN
     Indication: HYPERTENSION
     Dosage: 8 MG, QD
     Route: 065
  4. BISOPROLOL [Concomitant]
     Active Substance: BISOPROLOL
     Indication: HYPERTENSION
     Dosage: 2.5 MG, QD
     Route: 065

REACTIONS (7)
  - Polymyalgia rheumatica [Recovered/Resolved]
  - Musculoskeletal stiffness [Recovered/Resolved]
  - Visual impairment [Recovered/Resolved]
  - Death [Fatal]
  - Myalgia [Recovered/Resolved]
  - Temporal arteritis [Recovered/Resolved]
  - Arteritis [Recovered/Resolved]

NARRATIVE: CASE EVENT DATE: 200312
